FAERS Safety Report 16972053 (Version 2)
Quarter: 2019Q4

REPORT INFORMATION
  Report Type: Spontaneous
  Country: JP (occurrence: JP)
  Receive Date: 20191029
  Receipt Date: 20191111
  Transmission Date: 20200122
  Serious: Yes (Other)
  Sender: FDA-Public Use
  Company Number: JP-ALLERGAN-1943142US

PATIENT
  Sex: Male

DRUGS (4)
  1. LUMIGAN [Concomitant]
     Active Substance: BIMATOPROST
     Dosage: UNK
  2. COSOPT [Concomitant]
     Active Substance: DORZOLAMIDE HYDROCHLORIDE\TIMOLOL MALEATE
     Dosage: UNK
  3. GLANATEC [Concomitant]
     Active Substance: RIPASUDIL HYDROCHLORIDE DIHYDRATE
     Dosage: UNK
     Dates: start: 20180426
  4. ALPHAGAN P [Suspect]
     Active Substance: BRIMONIDINE TARTRATE
     Indication: GLAUCOMA
     Dosage: UNK, BID
     Route: 047
     Dates: start: 20121108, end: 20191015

REACTIONS (1)
  - Corneal opacity [Not Recovered/Not Resolved]

NARRATIVE: CASE EVENT DATE: 20191006
